FAERS Safety Report 9727191 (Version 1)
Quarter: 2013Q4

REPORT INFORMATION
  Report Type: Spontaneous
  Country: US (occurrence: US)
  Receive Date: 20131203
  Receipt Date: 20131203
  Transmission Date: 20140711
  Serious: No
  Sender: FDA-Public Use
  Company Number: US-BRISTOL-MYERS SQUIBB COMPANY-19681329

PATIENT
  Age: 45 Year
  Sex: Male

DRUGS (8)
  1. KOMBIGLYZE XR [Suspect]
     Dosage: KOMBIGLYZE XR 2.5/1000 MG
  2. GLIPIRIDE [Concomitant]
  3. ASPIRIN [Concomitant]
  4. LISINOPRIL [Concomitant]
  5. HYDROCHLOROTHIAZIDE [Concomitant]
  6. LOVASTATIN [Concomitant]
  7. LORAZEPAM [Concomitant]
  8. IBUPROFEN [Concomitant]

REACTIONS (1)
  - Pharyngeal oedema [Unknown]
